FAERS Safety Report 5189887-5 (Version None)
Quarter: 2006Q4

REPORT INFORMATION
  Report Type: 
  Country: None (occurrence: None)
  Receive Date: 20061215
  Receipt Date: 20061206
  Transmission Date: 20070319
  Serious: Yes (Hospitalization, Disabling, Other)
  Sender: FDA-Public Use
  Company Number: 2006038924

PATIENT
  Age: 80 Year
  Sex: Female

DRUGS (4)
  1. NIFEDIPINE [Suspect]
     Indication: CHEST PAIN
     Dosage: 5 MG, ORAL
     Route: 048
  2. NIFEDIPINE [Suspect]
     Indication: HYPERTENSION
     Dosage: 5 MG, ORAL
     Route: 048
  3. NITROGLICERINA (GLYCERYL TRINITRATE) [Suspect]
     Indication: CHEST PAIN
     Dosage: 0.6 MG, SUBLINGUAL
     Route: 060
  4. NITROGLICERINA (GLYCERYL TRINITRATE) [Suspect]
     Indication: HYPERTENSION
     Dosage: 0.6 MG, SUBLINGUAL
     Route: 060

REACTIONS (15)
  - BLADDER CATHETERISATION [None]
  - EYE PAIN [None]
  - FAECAL INCONTINENCE [None]
  - FEELING OF BODY TEMPERATURE CHANGE [None]
  - HYPOREFLEXIA [None]
  - ISCHAEMIC STROKE [None]
  - LACUNAR INFARCTION [None]
  - MUSCLE SPASTICITY [None]
  - MUSCULAR WEAKNESS [None]
  - NUCLEAR MAGNETIC RESONANCE IMAGING ABNORMAL [None]
  - PARAESTHESIA [None]
  - SCAN BONE MARROW ABNORMAL [None]
  - SENSORY LOSS [None]
  - SPINAL CORD INFARCTION [None]
  - WALKING AID USER [None]
